FAERS Safety Report 4272667-2 (Version None)
Quarter: 2004Q1

REPORT INFORMATION
  Report Type: 
  Country: None (occurrence: None)
  Receive Date: 20040115
  Receipt Date: 20040115
  Transmission Date: 20041129
  Serious: Yes (Other)
  Sender: FDA-Public Use
  Company Number: None

PATIENT
  Sex: Female
  Weight: 61.2356 kg

DRUGS (1)
  1. WESTROID  60MG  WESTERN RESEARCH [Suspect]
     Indication: HYPOTHYROIDISM
     Dosage: 1 TABLET   1X PER DAY   ORAL
     Route: 048
     Dates: start: 20030623, end: 20040114

REACTIONS (3)
  - EPSTEIN-BARR VIRUS INFECTION [None]
  - HEADACHE [None]
  - PHARMACEUTICAL PRODUCT COMPLAINT [None]
